FAERS Safety Report 10042293 (Version 2)
Quarter: 2014Q2

REPORT INFORMATION
  Report Type: Spontaneous
  Country: JP (occurrence: JP)
  Receive Date: 20140327
  Receipt Date: 20140411
  Transmission Date: 20141212
  Serious: Yes (Other)
  Sender: FDA-Public Use
  Company Number: JP-NAPPMUNDI-GBR-2014-0017545

PATIENT
  Age: 60 Year
  Sex: Male

DRUGS (11)
  1. NORSPAN 5MG [Suspect]
     Indication: PAIN
     Dosage: 5 MCG, Q1H
     Route: 062
     Dates: start: 20140313, end: 20140321
  2. NORSPAN 5MG [Suspect]
     Indication: DELIRIUM
     Dosage: 10 MCG, Q1H
     Route: 062
     Dates: start: 20140306, end: 20140312
  3. NORSPAN 5MG [Suspect]
     Dosage: 5 MCG, Q1H
     Route: 062
     Dates: start: 20140227, end: 20140306
  4. THYRADIN [Concomitant]
  5. MAINTATE [Concomitant]
  6. DOPAMINE [Concomitant]
  7. NEXIUM                             /01479302/ [Concomitant]
  8. CALONAL [Concomitant]
  9. LOXONIN [Concomitant]
  10. DEPAS [Concomitant]
  11. LENDORMIN [Concomitant]

REACTIONS (3)
  - Delirium [Not Recovered/Not Resolved]
  - Somnolence [Not Recovered/Not Resolved]
  - Drug withdrawal syndrome [Not Recovered/Not Resolved]
